FAERS Safety Report 8879779 (Version 3)
Quarter: 2013Q3

REPORT INFORMATION
  Report Type: Report from Study
  Country: JP (occurrence: JP)
  Receive Date: 20121101
  Receipt Date: 20130812
  Transmission Date: 20140515
  Serious: Yes (Hospitalization)
  Sender: FDA-Public Use
  Company Number: JP-VERTEX PHARMACEUTICAL INC.-AE-2012-008228

PATIENT
  Age: 47 Year
  Sex: Female

DRUGS (8)
  1. VX-950 (TELAPREVIR) [Suspect]
     Indication: CHRONIC HEPATITIS C
     Dosage: 2250 MG, QD
     Route: 048
     Dates: start: 20120412, end: 20120423
  2. VX-950 (TELAPREVIR) [Suspect]
     Dosage: 2250 MG, QD
     Route: 048
     Dates: start: 20120425, end: 20120506
  3. VX-950 (TELAPREVIR) [Suspect]
     Dosage: 2250 MG, QD
     Route: 048
     Dates: start: 20120511, end: 20120521
  4. PEGINTRON [Suspect]
     Indication: CHRONIC HEPATITIS C
     Dosage: 1.5 ?G/KG, QW
     Route: 058
     Dates: start: 20120412, end: 20120524
  5. PEGINTRON [Suspect]
     Dosage: 1.5 ?G/KG,QW
     Route: 058
     Dates: start: 20120607
  6. REBETOL [Suspect]
     Indication: CHRONIC HEPATITIS C
     Dosage: 1000 MG, QD
     Route: 048
     Dates: start: 20120412, end: 20120425
  7. REBETOL [Suspect]
     Dosage: 800 MG, QD
     Route: 048
     Dates: start: 20120426, end: 20120530
  8. REBETOL [Suspect]
     Dosage: 600 MG, QD
     Route: 058
     Dates: start: 20120608

REACTIONS (1)
  - Erythema [Recovered/Resolved]
